FAERS Safety Report 4317689-8 (Version None)
Quarter: 2004Q1

REPORT INFORMATION
  Report Type: 
  Country: None (occurrence: None)
  Receive Date: 20040315
  Receipt Date: 20040304
  Transmission Date: 20041129
  Serious: Yes (Other)
  Sender: FDA-Public Use
  Company Number: US-BRISTOL-MYERS SQUIBB COMPANY-12523791

PATIENT

DRUGS (2)
  1. VEPESID [Suspect]
     Indication: PROSTATE CANCER
     Dosage: EVERY 21 DAYS WITH 1 WEEK OFF
     Route: 048
  2. ESTRAMUSTINE [Suspect]
     Indication: PROSTATE CANCER
     Dosage: EVERY 21 DAYS WITH 1 WEEK OFF
     Route: 048

REACTIONS (7)
  - ANAEMIA [None]
  - DEEP VEIN THROMBOSIS [None]
  - GRANULOCYTOPENIA [None]
  - MALAISE [None]
  - NAUSEA [None]
  - OEDEMA [None]
  - VOMITING [None]
